FAERS Safety Report 6593172-4 (Version None)
Quarter: 2010Q1

REPORT INFORMATION
  Report Type: 
  Country: None (occurrence: None)
  Receive Date: 20100222
  Receipt Date: 20100213
  Transmission Date: 20100710
  Serious: Yes (Death, Other)
  Sender: FDA-Public Use
  Company Number: PHHY2010CA08955

PATIENT
  Sex: Female
  Weight: 50.6 kg

DRUGS (2)
  1. EXELON [Suspect]
     Indication: DEMENTIA ALZHEIMER'S TYPE
     Dosage: 10 CM
     Route: 062
     Dates: start: 20081216
  2. EXELON [Suspect]
     Dosage: 5 CM
     Route: 062
     Dates: start: 20090217

REACTIONS (3)
  - ACTIVITIES OF DAILY LIVING IMPAIRED [None]
  - COGNITIVE DISORDER [None]
  - DEATH [None]
